FAERS Safety Report 14987147 (Version 1)
Quarter: 2018Q2

REPORT INFORMATION
  Report Type: Spontaneous
  Country: KR (occurrence: KR)
  Receive Date: 20180608
  Receipt Date: 20180608
  Transmission Date: 20180711
  Serious: Yes (Death, Other)
  Sender: FDA-Public Use
  Company Number: KR-ALKEM LABORATORIES LIMITED-KR-ALKEM-2018-01797

PATIENT
  Age: 81 Year
  Sex: Male

DRUGS (1)
  1. LINEZOLID. [Suspect]
     Active Substance: LINEZOLID
     Indication: STAPHYLOCOCCAL OSTEOMYELITIS
     Dosage: UNK
     Route: 065

REACTIONS (5)
  - Lactic acidosis [Fatal]
  - Cardiac arrest [Fatal]
  - Serotonin syndrome [Unknown]
  - Thrombocytopenia [Unknown]
  - Hyperlactacidaemia [Unknown]
